FAERS Safety Report 25530265 (Version 1)
Quarter: 2025Q3

REPORT INFORMATION
  Report Type: Spontaneous
  Country: CN (occurrence: CN)
  Receive Date: 20250708
  Receipt Date: 20250708
  Transmission Date: 20251020
  Serious: Yes (Hospitalization, Other)
  Sender: MERCK SHARP & DOHME LLC
  Company Number: CN-009507513-2304392

PATIENT
  Age: 61 Year
  Sex: Male
  Weight: 55 kg

DRUGS (3)
  1. CILASTATIN SODIUM\IMIPENEM [Suspect]
     Active Substance: CILASTATIN SODIUM\IMIPENEM
     Indication: Sepsis
     Route: 041
     Dates: start: 20250607, end: 20250610
  2. SODIUM CHLORIDE [Concomitant]
     Active Substance: SODIUM CHLORIDE
     Dosage: 0.9% STRENGTH; A DRIP RATE OF 20-40 DROPS/MIN
     Route: 041
     Dates: start: 20250604
  3. MEROPENEM [Suspect]
     Active Substance: MEROPENEM
     Indication: Sepsis
     Dosage: WITH A DRIP RATE OF 20-40 DROPS/MIN
     Route: 041
     Dates: start: 20250604, end: 20250607

REACTIONS (5)
  - Drug eruption [Recovering/Resolving]
  - Sepsis [Unknown]
  - Incorrect dosage administered [Unknown]
  - Dermatitis exfoliative [Recovering/Resolving]
  - Dermatitis allergic [Recovering/Resolving]

NARRATIVE: CASE EVENT DATE: 20250607
